FAERS Safety Report 9445797 (Version 1)
Quarter: 2013Q3

REPORT INFORMATION
  Report Type: Spontaneous
  Country: US (occurrence: US)
  Receive Date: 20130807
  Receipt Date: 20130807
  Transmission Date: 20140515
  Serious: Yes (Other)
  Sender: FDA-Public Use
  Company Number: CHPA2013US010427

PATIENT
  Age: 53 Year
  Sex: Female

DRUGS (4)
  1. TRANSDERM SCOP [Suspect]
     Indication: NAUSEA
     Dosage: 1 DF, EVERY THREE DAYS
     Route: 062
  2. URSODIL [Concomitant]
     Indication: PRURITUS
  3. BUSPAR [Concomitant]
  4. RESTORIL [Concomitant]

REACTIONS (3)
  - Thyroid function test abnormal [Not Recovered/Not Resolved]
  - Off label use [Unknown]
  - Wrong technique in drug usage process [Unknown]
